FAERS Safety Report 24285702 (Version 1)
Quarter: 2024Q3

REPORT INFORMATION
  Report Type: Spontaneous
  Country: GB (occurrence: GB)
  Receive Date: 20240905
  Receipt Date: 20240905
  Transmission Date: 20241017
  Serious: Yes (Other)
  Sender: MYLAN
  Company Number: None

PATIENT
  Age: 87 Year
  Sex: Female
  Weight: 77 kg

DRUGS (23)
  1. DOXYCYCLINE [Suspect]
     Active Substance: DOXYCYCLINE\DOXYCYCLINE HYCLATE
     Indication: Infected cyst
     Dosage: 100 MILLIGRAM (TWO NOW THEN ONE DAILY)
     Route: 065
     Dates: start: 20240827
  2. ALLEVYN GENTLE BORDER [Concomitant]
     Indication: Ill-defined disorder
     Dosage: UNK (USE AS DIRECTED)
     Route: 065
     Dates: start: 20240828
  3. FUROSEMIDE [Concomitant]
     Active Substance: FUROSEMIDE
     Indication: Ill-defined disorder
     Dosage: 1 DOSAGE FORM, AM (TAKE ONE EACH MORNING)
     Route: 065
     Dates: start: 20240731, end: 20240828
  4. CODEINE PHOSPHATE [Concomitant]
     Active Substance: CODEINE PHOSPHATE
     Indication: Ill-defined disorder
     Dosage: UNK (TAKE ONE OR TWO UP TO FOUR TIMES/DAY.NOT FOR LONG TERM USE)
     Route: 065
     Dates: start: 20240729, end: 20240823
  5. Biatain silicone [Concomitant]
     Indication: Ill-defined disorder
     Dosage: UNK (USE AS DIRECTED)
     Route: 065
     Dates: start: 20240717, end: 20240814
  6. GLICLAZIDE [Concomitant]
     Active Substance: GLICLAZIDE
     Indication: Diabetes mellitus
     Dosage: 1 DOSAGE FORM, QD (ONE TO BE TAKEN WITH LUNCH FOR DIABETES)
     Route: 065
     Dates: start: 20240801
  7. MINERAL OIL\PARAFFIN [Concomitant]
     Active Substance: MINERAL OIL\PARAFFIN
     Indication: Ill-defined disorder
     Dosage: UNK UNK, QD (APPLY ONCE DAILY TO LEGS)
     Route: 065
     Dates: start: 20240806
  8. BETAMETHASONE VALERATE [Concomitant]
     Active Substance: BETAMETHASONE VALERATE
     Indication: Ill-defined disorder
     Dosage: UNK (MODERATE POTENCY STEROID CREAM -  APPLY TWICE A...)
     Route: 065
     Dates: start: 20240808
  9. FLUCLOXACILLIN [Concomitant]
     Active Substance: FLUCLOXACILLIN
     Indication: Ill-defined disorder
     Dosage: 1 DOSAGE FORM, QID (TAKE ONE CAPSULE FOUR TIMES DAILY FOR 7 DAYS)
     Route: 065
     Dates: start: 20240822, end: 20240829
  10. ATORVASTATIN [Concomitant]
     Active Substance: ATORVASTATIN
     Indication: Ill-defined disorder
     Dosage: 1 DOSAGE FORM, PM (ONE TO BE TAKEN IN THE EVENING)
     Route: 065
     Dates: start: 20220421
  11. BENSERAZIDE HYDROCHLORIDE\LEVODOPA [Concomitant]
     Active Substance: BENSERAZIDE HYDROCHLORIDE\LEVODOPA
     Indication: Ill-defined disorder
     Dosage: 1 DOSAGE FORM, QID (TAKE ONE AT 07:00, 11:00, 15:00 AND 19:00)
     Route: 065
     Dates: start: 20220421
  12. METFORMIN [Concomitant]
     Active Substance: METFORMIN HYDROCHLORIDE
     Indication: Ill-defined disorder
     Dosage: 2 DOSAGE FORM, BID (TAKE 2 IN THE MORNING WITH BREAKFAST AND 2 WITH)
     Route: 065
     Dates: start: 20220421
  13. ACETAMINOPHEN [Concomitant]
     Active Substance: ACETAMINOPHEN
     Indication: Ill-defined disorder
     Dosage: UNK (TAKE ONE OR TWO TABLETS UP TO FOUR TIMES A DAY)
     Route: 065
     Dates: start: 20220421
  14. RASAGILINE [Concomitant]
     Active Substance: RASAGILINE\RASAGILINE MESYLATE
     Indication: Ill-defined disorder
     Dosage: 1 DOSAGE FORM, QD (TAKE ONE DAILY)
     Route: 065
     Dates: start: 20220421
  15. LEVOTHYROXINE [Concomitant]
     Active Substance: LEVOTHYROXINE\LEVOTHYROXINE SODIUM
     Indication: Ill-defined disorder
     Dosage: 1 DOSAGE FORM, AM (TAKE ONE EACH MORNING ON AN EMTY STOMACH AT LEA...  )
     Route: 065
     Dates: start: 20220704
  16. RISEDRONATE SODIUM [Concomitant]
     Active Substance: RISEDRONATE SODIUM
     Indication: Ill-defined disorder
     Dosage: 1 DOSAGE FORM, QW (TAKE ONE WEEKLY AS BONE PROTECTION WHILE ON STE.)
     Route: 065
     Dates: start: 20220801
  17. OMEPRAZOLE [Concomitant]
     Active Substance: OMEPRAZOLE
     Indication: Ill-defined disorder
     Dosage: 1 DOSAGE FORM, QD (TAKE ONE DAILY AS GASTROPROTECTION WHILE TAKING)
     Route: 065
     Dates: start: 20221019
  18. LISINOPRIL [Concomitant]
     Active Substance: LISINOPRIL
     Indication: Ill-defined disorder
     Dosage: 1 DOSAGE FORM, QD (TAKE ONE DAILY)
     Route: 065
     Dates: start: 20221110
  19. Adcal [Concomitant]
     Indication: Ill-defined disorder
     Dosage: 1 DOSAGE FORM, PM (TAKE ONE AT BEDTIME TO PROTECT YOUR BONES )
     Route: 065
     Dates: start: 20230323
  20. ROTIGOTINE [Concomitant]
     Active Substance: ROTIGOTINE
     Indication: Ill-defined disorder
     Dosage: 1 DOSAGE FORM, QD (APPLY ONE DAILY)
     Route: 065
     Dates: start: 20230804
  21. AMANTADINE HYDROCHLORIDE [Concomitant]
     Active Substance: AMANTADINE HYDROCHLORIDE
     Indication: Ill-defined disorder
     Dosage: UNK (TAKE 5ML (5MG) EVERY MORNING AND TAKE 5ML (5MG)...)
     Route: 065
     Dates: start: 20231023
  22. PREDNISOLONE [Concomitant]
     Active Substance: PREDNISOLONE
     Indication: Ill-defined disorder
     Dosage: 20 MILLIGRAM, QD (20MG PO EVERY DAY)
     Route: 048
     Dates: start: 20231122
  23. LINAGLIPTIN [Concomitant]
     Active Substance: LINAGLIPTIN
     Indication: Ill-defined disorder
     Dosage: 1 DOSAGE FORM, QD (TAKE ONE DAILY)
     Route: 065
     Dates: start: 20240208

REACTIONS (4)
  - Tachycardia [Unknown]
  - Tremor [Unknown]
  - Vision blurred [Unknown]
  - Somnolence [Recovering/Resolving]
